FAERS Safety Report 11208154 (Version 2)
Quarter: 2015Q3

REPORT INFORMATION
  Report Type: Spontaneous
  Country: US (occurrence: US)
  Receive Date: 20150622
  Receipt Date: 20150702
  Transmission Date: 20151125
  Serious: No
  Sender: FDA-Public Use
  Company Number: US-PFIZER INC-2015203377

PATIENT
  Age: 86 Year
  Sex: Female
  Weight: 39 kg

DRUGS (3)
  1. ADVIL [Suspect]
     Active Substance: IBUPROFEN
     Indication: PAIN
     Dosage: 200 MG, AS NEEDED, (ONCE EVERY 4-5 HOURS)
     Route: 048
     Dates: start: 201505, end: 201505
  2. BOOST [Concomitant]
     Indication: WEIGHT INCREASED
     Dosage: 1 CAN PER DAY
     Route: 048
  3. METAMUCIL [Concomitant]
     Active Substance: PLANTAGO SEED
     Indication: MEDICAL DIET
     Dosage: 1 TEASPOON IN A GLASS OF WATER ONCE A DAY
     Route: 048

REACTIONS (3)
  - Product difficult to swallow [Recovered/Resolved]
  - Product size issue [Recovered/Resolved]
  - Dysphagia [Recovered/Resolved]

NARRATIVE: CASE EVENT DATE: 201505
